FAERS Safety Report 12467467 (Version 1)
Quarter: 2016Q2

REPORT INFORMATION
  Report Type: Spontaneous
  Country: ES (occurrence: ES)
  Receive Date: 20160615
  Receipt Date: 20160615
  Transmission Date: 20160815
  Serious: Yes (Hospitalization, Other)
  Sender: FDA-Public Use
  Company Number: ES-BAYER-2016-113321

PATIENT
  Age: 83 Year
  Sex: Female

DRUGS (2)
  1. ADIRO 100 [Suspect]
     Active Substance: ASPIRIN
     Indication: DRUG THERAPY
     Dosage: 100 MG, QD
     Route: 048
     Dates: start: 20090825
  2. PAROXETINE. [Interacting]
     Active Substance: PAROXETINE
     Indication: DRUG THERAPY
     Dosage: 10 MG, QD
     Route: 048
     Dates: start: 20100427

REACTIONS (1)
  - Subdural haematoma [Recovered/Resolved]

NARRATIVE: CASE EVENT DATE: 20160405
